FAERS Safety Report 9343922 (Version 3)
Quarter: 2014Q1

REPORT INFORMATION
  Report Type: Report from Study
  Country: PT (occurrence: PT)
  Receive Date: 20130612
  Receipt Date: 20140307
  Transmission Date: 20141002
  Serious: Yes (Other)
  Sender: FDA-Public Use
  Company Number: PT-ROCHE-1236006

PATIENT
  Age: 57 Year
  Sex: Male

DRUGS (16)
  1. RANIBIZUMAB [Suspect]
     Indication: PRODUCT USED FOR UNKNOWN INDICATION
     Route: 050
     Dates: start: 20130121
  2. RANIBIZUMAB [Suspect]
     Route: 050
     Dates: start: 20130222
  3. LOSARTAN/HCTZ [Concomitant]
     Indication: HYPERTENSION
     Dosage: DOSE 100/25
     Route: 065
     Dates: start: 2009, end: 201312
  4. ZURCAL [Concomitant]
     Route: 065
     Dates: start: 2006
  5. DORMICUM (PORTUGAL) [Concomitant]
     Route: 065
     Dates: start: 2009
  6. SUPRALIP [Concomitant]
     Route: 065
     Dates: start: 2009, end: 2013
  7. RANTUDIL [Concomitant]
     Route: 065
     Dates: start: 20130213, end: 20130327
  8. DUSPATAL [Concomitant]
     Route: 065
     Dates: start: 20130221, end: 20130228
  9. PIROXICAM [Concomitant]
     Route: 065
     Dates: start: 20130202, end: 20130209
  10. SPASMOMEN [Concomitant]
     Route: 065
     Dates: start: 201304, end: 2013
  11. ZALDIAR [Concomitant]
     Route: 065
     Dates: start: 20130722
  12. RAMIPRIL [Concomitant]
     Route: 065
     Dates: start: 20130722
  13. AMITRIPTILINA [Concomitant]
     Route: 065
     Dates: start: 20130722
  14. EXXIV [Concomitant]
     Route: 065
     Dates: start: 20130722, end: 20130731
  15. LOVENOX [Concomitant]
     Route: 065
     Dates: start: 20130722, end: 20130812
  16. TROMALYT [Concomitant]
     Route: 065
     Dates: start: 201305

REACTIONS (3)
  - Lacunar infarction [Recovering/Resolving]
  - Eye pain [Unknown]
  - Diplopia [Not Recovered/Not Resolved]
